FAERS Safety Report 8528980-3 (Version None)
Quarter: 2012Q3

REPORT INFORMATION
  Report Type: 
  Country: None (occurrence: None)
  Receive Date: 20120723
  Receipt Date: 20120720
  Transmission Date: 20120928
  Serious: Yes (Other)
  Sender: FDA-Public Use
  Company Number: US-PFIZER INC-2012176211

PATIENT
  Sex: Female
  Weight: 39.909 kg

DRUGS (4)
  1. CRESTOR [Concomitant]
     Indication: BLOOD CHOLESTEROL INCREASED
     Dosage: 40 MG, DAILY
  2. CHANTIX [Suspect]
     Indication: SMOKING CESSATION THERAPY
     Dosage: 0.5 MG,DAILY
     Route: 048
     Dates: start: 20120711, end: 20120701
  3. NOVOLOG [Concomitant]
     Indication: DIABETES MELLITUS
     Dosage: 12.8 IU, DAILY
  4. CHANTIX [Suspect]
     Dosage: 1 MG, 2X/DAY (IN THE MORNING AND IN THE EVENING)
     Route: 048
     Dates: start: 20120701

REACTIONS (6)
  - NAUSEA [None]
  - FATIGUE [None]
  - CHEST DISCOMFORT [None]
  - TOBACCO USER [None]
  - SOMNOLENCE [None]
  - VOMITING [None]
